FAERS Safety Report 6877332-0 (Version None)
Quarter: 2010Q3

REPORT INFORMATION
  Report Type: 
  Country: None (occurrence: None)
  Receive Date: 20100727
  Receipt Date: 20090908
  Transmission Date: 20110219
  Serious: No
  Sender: FDA-Public Use
  Company Number: US-ABBOTT-09P-163-0596610-00

PATIENT
  Sex: Female
  Weight: 60.382 kg

DRUGS (5)
  1. SYNTHROID [Suspect]
     Indication: THYROIDECTOMY
     Dates: start: 19880101
  2. SYNTHROID [Suspect]
  3. SYNTHROID [Suspect]
     Dates: end: 20090904
  4. VITAMINS [Concomitant]
     Indication: PRODUCT USED FOR UNKNOWN INDICATION
     Dosage: DECLINED VITAMIN LIST
     Dates: end: 20090904
  5. LEVOXYL [Concomitant]
     Indication: PRODUCT USED FOR UNKNOWN INDICATION
     Dates: start: 20090905

REACTIONS (4)
  - LABELLED DRUG-DRUG INTERACTION MEDICATION ERROR [None]
  - LIP BLISTER [None]
  - LIP SWELLING [None]
  - NAIL GROWTH ABNORMAL [None]
